FAERS Safety Report 8831535 (Version 1)
Quarter: 2012Q4

REPORT INFORMATION
  Report Type: 
  Country: US (occurrence: US)
  Receive Date: 20121009
  Receipt Date: 20121009
  Transmission Date: 20130627
  Serious: Yes (Hospitalization)
  Sender: FDA-Public Use
  Company Number: US-ROCHE-1137708

PATIENT
  Sex: Female

DRUGS (9)
  1. RITUXAN [Suspect]
     Indication: FACTOR VIII INHIBITION
     Route: 042
     Dates: start: 20010330
  2. RITUXAN [Suspect]
     Indication: OFF LABEL USE
     Route: 042
     Dates: start: 20010420
  3. CYTOXAN [Concomitant]
     Route: 042
     Dates: start: 20010330
  4. PREMARIN [Concomitant]
     Indication: HORMONE REPLACEMENT THERAPY
     Route: 048
  5. ACCUPRIL [Concomitant]
     Indication: BLOOD PRESSURE
     Route: 048
  6. TYLENOL [Concomitant]
     Route: 048
  7. BENADRYL [Concomitant]
     Route: 048
  8. BENADRYL [Concomitant]
     Route: 048
  9. ZOFRAN [Concomitant]
     Route: 048

REACTIONS (3)
  - Haematoma [Recovered/Resolved]
  - Haemorrhage [Unknown]
  - Contusion [Unknown]
